FAERS Safety Report 8436254-4 (Version None)
Quarter: 2012Q2

REPORT INFORMATION
  Report Type: 
  Country: None (occurrence: None)
  Receive Date: 20120614
  Receipt Date: 20120604
  Transmission Date: 20120825
  Serious: Yes (Other)
  Sender: FDA-Public Use
  Company Number: FR-JNJFOC-20120309779

PATIENT
  Age: 33 Year
  Sex: Female
  Weight: 47 kg

DRUGS (4)
  1. ANTIHISTAMINES [Concomitant]
     Indication: PREMEDICATION
     Route: 065
  2. REMICADE [Suspect]
     Indication: CROHN'S DISEASE
     Route: 042
     Dates: start: 20111101
  3. REMICADE [Suspect]
     Indication: ANKYLOSING SPONDYLITIS
     Route: 042
     Dates: start: 20111101
  4. DESLORATADINE [Concomitant]
     Indication: PREMEDICATION
     Route: 065

REACTIONS (1)
  - TENDONITIS [None]
